FAERS Safety Report 25070619 (Version 1)
Quarter: 2025Q1

REPORT INFORMATION
  Report Type: Spontaneous
  Country: US (occurrence: US)
  Receive Date: 20250312
  Receipt Date: 20250312
  Transmission Date: 20250409
  Serious: No
  Sender: BAYER HEALTHCARE PHARMACEUTICALS INC.
  Company Number: US-BAYER-2025A030691

PATIENT
  Age: 17 Month
  Sex: Female

DRUGS (1)
  1. CIPRO [Suspect]
     Active Substance: CIPROFLOXACIN HYDROCHLORIDE
     Indication: Mycobacterial infection
     Route: 048

REACTIONS (3)
  - Product use issue [None]
  - Product use in unapproved indication [None]
  - Product prescribing issue [None]
